FAERS Safety Report 5812129-1 (Version None)
Quarter: 2008Q3

REPORT INFORMATION
  Report Type: 
  Country: None (occurrence: None)
  Receive Date: 20080716
  Receipt Date: 20080710
  Transmission Date: 20090109
  Serious: Yes (Other)
  Sender: FDA-Public Use
  Company Number: US-ALLERGAN-0808405US

PATIENT
  Sex: Female

DRUGS (3)
  1. ACULAR LS [Suspect]
     Indication: EYE PAIN
     Route: 047
  2. PRED FORTE [Suspect]
     Indication: POSTOPERATIVE CARE
     Route: 047
  3. ZYMAR [Suspect]
     Indication: POSTOPERATIVE CARE
     Route: 047

REACTIONS (3)
  - CORNEAL BLEEDING [None]
  - JAUNDICE [None]
  - PETECHIAE [None]
